FAERS Safety Report 4983095-6 (Version None)
Quarter: 2006Q2

REPORT INFORMATION
  Report Type: 
  Country: None (occurrence: None)
  Receive Date: 20060419
  Receipt Date: 20060407
  Transmission Date: 20061013
  Serious: Yes (Hospitalization, Other)
  Sender: FDA-Public Use
  Company Number: 200610228BYL

PATIENT
  Age: 75 Year
  Sex: Male

DRUGS (6)
  1. BAY43-9006 (SORAFENIB) [Suspect]
     Indication: RENAL CELL CARCINOMA STAGE UNSPECIFIED
     Dosage: 400 MG, BID, ORAL
     Route: 048
     Dates: start: 20050617, end: 20060116
  2. FAMOTIDINE [Suspect]
     Indication: GASTROINTESTINAL DISORDER
     Dosage: 20 MG, TOTAL DAILY, ORAL
     Route: 048
     Dates: start: 20050517, end: 20060213
  3. FAMOTIDINE [Suspect]
     Indication: PROPHYLAXIS
     Dosage: 20 MG, TOTAL DAILY, ORAL
     Route: 048
     Dates: start: 20050517, end: 20060213
  4. LOBU [Concomitant]
  5. BLOPRESS [Concomitant]
  6. AMLODIN [Concomitant]

REACTIONS (10)
  - ANAEMIA [None]
  - ANAEMIA HAEMOLYTIC AUTOIMMUNE [None]
  - ANTIBODY TEST POSITIVE [None]
  - DRUG INEFFECTIVE [None]
  - FATIGUE [None]
  - HAEMOLYTIC ANAEMIA [None]
  - METASTASES TO LUNG [None]
  - OCCULT BLOOD POSITIVE [None]
  - PALPITATIONS [None]
  - RETICULOCYTE COUNT INCREASED [None]
